FAERS Safety Report 17501399 (Version 1)
Quarter: 2020Q1

REPORT INFORMATION
  Report Type: Spontaneous
  Country: US (occurrence: US)
  Receive Date: 20200304
  Receipt Date: 20200304
  Transmission Date: 20200409
  Serious: Yes (Disabling)
  Sender: FDA-Public Use
  Company Number: None

PATIENT
  Age: 25 Year
  Sex: Female
  Weight: 59.4 kg

DRUGS (6)
  1. SERTRALINE 100MG TABLET [Suspect]
     Active Substance: SERTRALINE HYDROCHLORIDE
     Indication: GENERALISED ANXIETY DISORDER
     Dosage: ?          QUANTITY:1 TABLET(S);?
     Route: 048
  2. SERTRALINE 100MG TABLET [Suspect]
     Active Substance: SERTRALINE HYDROCHLORIDE
     Indication: DEPRESSION
     Dosage: ?          QUANTITY:1 TABLET(S);?
     Route: 048
  3. ALLEREASE [Concomitant]
  4. SERTRALINE [Suspect]
     Active Substance: SERTRALINE HYDROCHLORIDE
     Indication: DEPRESSION
     Dosage: ?          QUANTITY:1.5 TABLET(S);?
     Route: 048
  5. VYVANSE 70MG [Concomitant]
  6. BUSPIRONE [Concomitant]
     Active Substance: BUSPIRONE HYDROCHLORIDE

REACTIONS (3)
  - Scar [None]
  - Skin hyperpigmentation [None]
  - Acne [None]

NARRATIVE: CASE EVENT DATE: 20151004
